FAERS Safety Report 4668632-3 (Version None)
Quarter: 2005Q2

REPORT INFORMATION
  Report Type: 
  Country: None (occurrence: None)
  Receive Date: 20050519
  Receipt Date: 20050504
  Transmission Date: 20051028
  Serious: Yes (Death)
  Sender: FDA-Public Use
  Company Number: S05-USA-00938-01

PATIENT
  Age: 90 Year
  Sex: Male
  Weight: 86.1834 kg

DRUGS (9)
  1. NAMENDA [Suspect]
     Indication: DEMENTIA
     Dosage: 10 MG BID PO
     Route: 048
     Dates: start: 20040428, end: 20041219
  2. NAMENDA [Suspect]
     Indication: DEMENTIA
     Dosage: 5 MG QD PO
     Route: 048
     Dates: start: 20040407, end: 20040413
  3. NAMENDA [Suspect]
     Indication: DEMENTIA
     Dosage: 5 MG BID PO
     Route: 048
     Dates: start: 20040414, end: 20040420
  4. NAMENDA [Suspect]
     Indication: DEMENTIA
     Dosage: 15 MG QD PO
     Route: 048
     Dates: start: 20040421, end: 20040427
  5. ARICEPT [Suspect]
     Indication: DEMENTIA
     Dosage: 10 MG QHS
     Dates: start: 20010601
  6. ALLOPURINOL [Suspect]
  7. LISINOPRIL [Concomitant]
  8. LASIX [Concomitant]
  9. VERAPAMIL [Concomitant]

REACTIONS (32)
  - ADRENOCORTICAL INSUFFICIENCY CHRONIC [None]
  - ANAEMIA MACROCYTIC [None]
  - ANURIA [None]
  - AORTIC ATHEROSCLEROSIS [None]
  - AORTIC VALVE CALCIFICATION [None]
  - ASCITES [None]
  - BLOOD CULTURE POSITIVE [None]
  - CARDIOMEGALY [None]
  - CEREBRAL ATROPHY [None]
  - CEREBRAL VENTRICLE DILATATION [None]
  - CONTUSION [None]
  - CORYNEBACTERIUM INFECTION [None]
  - DEMENTIA ALZHEIMER'S TYPE [None]
  - FALL [None]
  - HYPOTHERMIA [None]
  - JAUNDICE [None]
  - METABOLIC ACIDOSIS [None]
  - NEPHRITIS INTERSTITIAL [None]
  - PANCYTOPENIA [None]
  - PERICARDIAL FIBROSIS [None]
  - PERITONEAL ADHESIONS [None]
  - PLEURAL ADHESION [None]
  - PLEURAL EFFUSION [None]
  - PNEUMOTHORAX [None]
  - PULMONARY OEDEMA [None]
  - RENAL ARTERIOSCLEROSIS [None]
  - RENAL FAILURE [None]
  - SCAR [None]
  - SKIN ULCER [None]
  - SPLENOMEGALY [None]
  - THERMAL BURN [None]
  - VITAMIN B12 DEFICIENCY [None]
